FAERS Safety Report 13648591 (Version 1)
Quarter: 2017Q2

REPORT INFORMATION
  Report Type: Spontaneous
  Country: US (occurrence: US)
  Receive Date: 20170613
  Receipt Date: 20170613
  Transmission Date: 20170830
  Serious: No
  Sender: FDA-Public Use
  Company Number: US-CIPLA LTD.-2017US02793

PATIENT

DRUGS (1)
  1. BUPROPION HYDROCHLORIDE XL [Suspect]
     Active Substance: BUPROPION HYDROCHLORIDE
     Dosage: UNK
     Route: 065

REACTIONS (11)
  - Crying [Unknown]
  - Anxiety [Unknown]
  - Tremor [Unknown]
  - Nervousness [Unknown]
  - Lethargy [Unknown]
  - Product substitution issue [Unknown]
  - Discomfort [Unknown]
  - Depression [Unknown]
  - Dyspnoea [Unknown]
  - Abnormal behaviour [Unknown]
  - Disturbance in attention [Unknown]
